FAERS Safety Report 6641292-8 (Version None)
Quarter: 2010Q1

REPORT INFORMATION
  Report Type: 
  Country: None (occurrence: None)
  Receive Date: 20100318
  Receipt Date: 20100309
  Transmission Date: 20100710
  Serious: Yes (Life-Threatening, Hospitalization)
  Sender: FDA-Public Use
  Company Number: AU-MYLANLABS-2010S1003630

PATIENT
  Age: 70 Year
  Sex: Male

DRUGS (4)
  1. KINSON [Suspect]
     Indication: PARKINSON'S DISEASE
     Route: 048
     Dates: start: 20090501
  2. KINSON [Suspect]
     Route: 048
     Dates: start: 20090501
  3. ACTONEL WITH CALCIUM (COPACKAGED) [Concomitant]
     Indication: OSTEOPOROSIS
  4. FISH OIL [Concomitant]

REACTIONS (1)
  - NEUROENDOCRINE CARCINOMA OF THE SKIN [None]
